FAERS Safety Report 8896527 (Version 1)
Quarter: 2012Q4

REPORT INFORMATION
  Report Type: Spontaneous
  Country: US (occurrence: None)
  Receive Date: 20121107
  Receipt Date: 20121107
  Transmission Date: 20130627
  Serious: Yes (Hospitalization)
  Sender: FDA-Public Use
  Company Number: None

PATIENT
  Age: 88 Year
  Sex: Male
  Weight: 82.9 kg

DRUGS (2)
  1. ACARBOSE [Suspect]
     Indication: DIABETES MELLITUS
     Dosage: 12.5 MG PO
     Route: 048
     Dates: start: 20081117, end: 20121013
  2. GLIPIZIDE [Suspect]
     Indication: DIABETES MELLITUS
     Dosage: 2.5 MG PO
     Route: 048
     Dates: start: 20090708, end: 20121031

REACTIONS (1)
  - Hypoglycaemia [None]
